FAERS Safety Report 5905450-X (Version None)
Quarter: 2008Q4

REPORT INFORMATION
  Report Type: 
  Country: None (occurrence: None)
  Receive Date: 20081001
  Receipt Date: 20081001
  Transmission Date: 20090506
  Serious: Yes (Death)
  Sender: FDA-Public Use
  Company Number: None

PATIENT
  Age: 64 Year
  Sex: Male
  Weight: 86.1834 kg

DRUGS (1)
  1. NEURONTIN [Suspect]
     Indication: SLEEP DISORDER
     Dosage: 600 MG PO
     Route: 048
     Dates: start: 20070101, end: 20080218

REACTIONS (3)
  - ABNORMAL BEHAVIOUR [None]
  - ASPHYXIA [None]
  - COMPLETED SUICIDE [None]
